FAERS Safety Report 10790912 (Version 4)
Quarter: 2015Q1

REPORT INFORMATION
  Report Type: Report from Study
  Country: BR (occurrence: BR)
  Receive Date: 20150212
  Receipt Date: 20150326
  Transmission Date: 20150721
  Serious: Yes (Life-Threatening, Hospitalization, Other)
  Sender: FDA-Public Use
  Company Number: PHHY2015BR017106

PATIENT
  Age: 95 Year
  Sex: Male
  Weight: 80 kg

DRUGS (11)
  1. EXELON PATCH [Suspect]
     Active Substance: RIVASTIGMINE
     Indication: DEMENTIA WITH LEWY BODIES
     Dosage: 13.3 MG, QD (ONE PATCH 15CM2 DAILY)
     Route: 062
  2. ALOIS [Concomitant]
     Active Substance: MEMANTINE
     Dosage: 1 DF, QD
     Route: 065
  3. ALOIS [Concomitant]
     Active Substance: MEMANTINE
     Indication: DEMENTIA ALZHEIMER^S TYPE
     Dosage: 1 DF, QD
     Route: 048
  4. AAS PROTECT [Concomitant]
     Active Substance: ASPIRIN
     Indication: PRODUCT USED FOR UNKNOWN INDICATION
     Dosage: 1 DF, QD
     Route: 048
  5. LACTULONA [Concomitant]
     Indication: PRODUCT USED FOR UNKNOWN INDICATION
     Dosage: UNK
     Route: 048
  6. URO VAXOM [Concomitant]
     Indication: DEMENTIA ALZHEIMER^S TYPE
     Dosage: 1 DF, QD
     Route: 048
  7. MOTILIUM [Concomitant]
     Active Substance: DOMPERIDONE
     Indication: GASTRIC DISORDER
     Dosage: 1 DF, UNK
     Route: 048
  8. ZORAX [Concomitant]
     Indication: DEMENTIA ALZHEIMER^S TYPE
     Dosage: 1.5 DF, QD
     Route: 048
  9. NEXIUM [Concomitant]
     Active Substance: ESOMEPRAZOLE MAGNESIUM
     Indication: GASTRIC DISORDER
     Dosage: 1 DF, QD
     Route: 048
  10. PROLOPA [Concomitant]
     Active Substance: BENSERAZIDE\LEVODOPA
     Indication: DEMENTIA ALZHEIMER^S TYPE
     Dosage: 6 DF, QD (EVERY FOUR HOURS)
     Route: 048
  11. MACRODANTIN [Concomitant]
     Active Substance: NITROFURANTOIN
     Indication: PRODUCT USED FOR UNKNOWN INDICATION
     Dosage: 1 DF, QD
     Route: 048

REACTIONS (17)
  - Dysphonia [Not Recovered/Not Resolved]
  - Hypersomnia [Recovering/Resolving]
  - Cardiac arrest [Recovered/Resolved]
  - Parkinson^s disease [Unknown]
  - Urinary tract infection [Unknown]
  - Aspiration bronchial [Recovered/Resolved]
  - Hypersensitivity [Recovered/Resolved]
  - Brain stem stroke [Recovered/Resolved]
  - Dementia Alzheimer^s type [Unknown]
  - Swelling [Recovered/Resolved]
  - Hepatic neoplasm [Not Recovered/Not Resolved]
  - Eschar [Recovering/Resolving]
  - Nervousness [Not Recovered/Not Resolved]
  - Bladder cancer [Not Recovered/Not Resolved]
  - Agitation [Not Recovered/Not Resolved]
  - Anaemia [Unknown]
  - Prostate cancer [Not Recovered/Not Resolved]

NARRATIVE: CASE EVENT DATE: 2014
